FAERS Safety Report 8578390-8 (Version None)
Quarter: 2012Q3

REPORT INFORMATION
  Report Type: 
  Country: None (occurrence: None)
  Receive Date: 20120808
  Receipt Date: 20120730
  Transmission Date: 20120928
  Serious: Yes (Other)
  Sender: FDA-Public Use
  Company Number: SE-AMGEN-SWESP2012047571

PATIENT
  Age: 7 Year
  Sex: Female

DRUGS (1)
  1. NEUPOGEN [Suspect]
     Indication: INFANTILE GENETIC AGRANULOCYTOSIS
     Dosage: 80 MUG/KG, UNK

REACTIONS (1)
  - DRUG RESISTANCE [None]
